FAERS Safety Report 11683793 (Version 1)
Quarter: 2015Q4

REPORT INFORMATION
  Report Type: Spontaneous
  Country: US (occurrence: US)
  Receive Date: 20151029
  Receipt Date: 20151029
  Transmission Date: 20160304
  Serious: No
  Sender: FDA-Public Use
  Company Number: US-ROCHE-1542848

PATIENT
  Age: 71 Year
  Sex: Male

DRUGS (2)
  1. TRASTUZUMAB [Suspect]
     Active Substance: TRASTUZUMAB
     Indication: EXTRAMAMMARY PAGET^S DISEASE
     Dosage: LOADING DOSE
     Route: 042
  2. TRASTUZUMAB [Suspect]
     Active Substance: TRASTUZUMAB
     Dosage: EVERY THIRD WEEK
     Route: 042

REACTIONS (1)
  - Fatigue [Unknown]
